FAERS Safety Report 7434677-3 (Version None)
Quarter: 2011Q2

REPORT INFORMATION
  Report Type: 
  Country: None (occurrence: None)
  Receive Date: 20110425
  Receipt Date: 20110415
  Transmission Date: 20111010
  Serious: Yes (Other)
  Sender: FDA-Public Use
  Company Number: AU-JNJFOC-20110408846

PATIENT

DRUGS (1)
  1. GALANTAMINE HYDROBROMIDE [Suspect]
     Indication: ILL-DEFINED DISORDER
     Route: 048

REACTIONS (2)
  - CARDIAC DISORDER [None]
  - PRODUCT QUALITY ISSUE [None]
